FAERS Safety Report 8475707-X (Version None)
Quarter: 2012Q2

REPORT INFORMATION
  Report Type: 
  Country: None (occurrence: None)
  Receive Date: 20120628
  Receipt Date: 20120623
  Transmission Date: 20120825
  Serious: Yes (Hospitalization)
  Sender: FDA-Public Use
  Company Number: CA-GLAXOSMITHKLINE-A0982193A

PATIENT
  Sex: Female

DRUGS (2)
  1. FLOLAN [Suspect]
     Indication: PULMONARY HYPERTENSION
     Dosage: 1.5MG SEE DOSAGE TEXT
     Route: 042
     Dates: start: 20090422, end: 20120615
  2. FLOLAN [Suspect]
     Indication: PULMONARY HYPERTENSION
     Route: 042
     Dates: start: 20090422, end: 20120615

REACTIONS (2)
  - ABDOMINAL DISTENSION [None]
  - PAIN [None]
